FAERS Safety Report 13558111 (Version 1)
Quarter: 2017Q2

REPORT INFORMATION
  Report Type: Spontaneous
  Country: US (occurrence: US)
  Receive Date: 20170518
  Receipt Date: 20170518
  Transmission Date: 20170830
  Serious: Yes (Other)
  Sender: FDA-Public Use
  Company Number: US-GLAXOSMITHKLINE-US2017072785

PATIENT
  Age: 69 Year
  Sex: Male

DRUGS (4)
  1. TANZEUM [Suspect]
     Active Substance: ALBIGLUTIDE
     Indication: DIABETES MELLITUS
     Dosage: 30 MG, U
     Route: 042
     Dates: start: 2016
  2. PIOGLITAZONE. [Concomitant]
     Active Substance: PIOGLITAZONE
  3. VALSARTAN. [Concomitant]
     Active Substance: VALSARTAN
  4. TANZEUM [Suspect]
     Active Substance: ALBIGLUTIDE
     Dosage: 50 MG, U
     Route: 042

REACTIONS (4)
  - Blood glucose increased [Recovered/Resolved]
  - Hernia repair [Recovering/Resolving]
  - Constipation [Not Recovered/Not Resolved]
  - Drug ineffective [Recovered/Resolved]

NARRATIVE: CASE EVENT DATE: 20170515
